FAERS Safety Report 25532434 (Version 1)
Quarter: 2025Q3

REPORT INFORMATION
  Report Type: Spontaneous
  Country: US (occurrence: US)
  Receive Date: 20250709
  Receipt Date: 20250709
  Transmission Date: 20251020
  Serious: No
  Sender: STALLERGENES
  Company Number: US-STALCOR-2025-AER-01148

PATIENT
  Age: 14 Year
  Sex: Male

DRUGS (1)
  1. ORALAIR [Suspect]
     Active Substance: ANTHOXANTHUM ODORATUM POLLEN\DACTYLIS GLOMERATA POLLEN\LOLIUM PERENNE POLLEN\PHLEUM PRATENSE POLLEN\
     Indication: Seasonal allergy
     Dosage: PLACE ONE TABLET UNDER THE TONGUE ONCE DAILY
     Route: 060
     Dates: start: 20250109

REACTIONS (2)
  - Oral pruritus [Unknown]
  - Tongue oedema [Unknown]
